FAERS Safety Report 20379081 (Version 1)
Quarter: 2022Q1

REPORT INFORMATION
  Report Type: Spontaneous
  Country: US (occurrence: None)
  Receive Date: 20220126
  Receipt Date: 20220126
  Transmission Date: 20220423
  Serious: Yes (Death)
  Sender: FDA-Public Use
  Company Number: US-ROCHE-3004935

PATIENT
  Sex: Female

DRUGS (21)
  1. ACTEMRA [Suspect]
     Active Substance: TOCILIZUMAB
     Indication: Rheumatoid arthritis
     Dosage: STRENGTH:162 MG/0.9 ML
     Route: 058
     Dates: start: 20150326
  2. DICLOFENAC [Concomitant]
     Active Substance: DICLOFENAC
  3. FENOFIBRATE [Concomitant]
     Active Substance: FENOFIBRATE
  4. FUROSEMIDE [Concomitant]
     Active Substance: FUROSEMIDE
  5. IBUPROFEN [Concomitant]
     Active Substance: IBUPROFEN
  6. LEVOTHYROXINE [Concomitant]
     Active Substance: LEVOTHYROXINE
  7. LIDOCAINE [Concomitant]
     Active Substance: LIDOCAINE
  8. LORAZEPAM [Concomitant]
     Active Substance: LORAZEPAM
  9. LUMIGAN [Concomitant]
     Active Substance: BIMATOPROST
  10. METOPROLOL [Concomitant]
     Active Substance: METOPROLOL
  11. MYRBETRIQ [Concomitant]
     Active Substance: MIRABEGRON
  12. NEUPRO [Concomitant]
     Active Substance: ROTIGOTINE
  13. OMEPRAZOLE [Concomitant]
     Active Substance: OMEPRAZOLE
  14. PREDNISONE [Concomitant]
     Active Substance: PREDNISONE
  15. PREGABALIN [Concomitant]
     Active Substance: PREGABALIN
  16. PROLIA [Concomitant]
     Active Substance: DENOSUMAB
  17. RASAGILINE [Concomitant]
     Active Substance: RASAGILINE
  18. RESTASIS [Concomitant]
     Active Substance: CYCLOSPORINE
  19. SPIRONOLACTONE [Concomitant]
     Active Substance: SPIRONOLACTONE
  20. TYLENOL [Concomitant]
     Active Substance: ACETAMINOPHEN
  21. CARBIDOPA\LEVODOPA [Concomitant]
     Active Substance: CARBIDOPA\LEVODOPA

REACTIONS (1)
  - Death [Fatal]
